FAERS Safety Report 13113190 (Version 1)
Quarter: 2017Q1

REPORT INFORMATION
  Report Type: Spontaneous
  Country: US (occurrence: US)
  Receive Date: 20170112
  Receipt Date: 20170112
  Transmission Date: 20170428
  Serious: Yes (Hospitalization)
  Sender: FDA-Public Use
  Company Number: None

PATIENT
  Age: 51 Year
  Sex: Female

DRUGS (5)
  1. COLACE [Concomitant]
     Active Substance: DOCUSATE SODIUM
  2. GLATOPA [Concomitant]
     Active Substance: GLATIRAMER ACETATE
  3. WELLBUTRIN [Concomitant]
     Active Substance: BUPROPION HYDROCHLORIDE
  4. AMPYRA [Suspect]
     Active Substance: DALFAMPRIDINE
     Indication: MULTIPLE SCLEROSIS
     Route: 048
     Dates: start: 201008
  5. MOTRIN [Concomitant]
     Active Substance: IBUPROFEN

REACTIONS (2)
  - Uterine leiomyoma [None]
  - Laboratory test abnormal [None]

NARRATIVE: CASE EVENT DATE: 20161214
